FAERS Safety Report 8886891 (Version 1)
Quarter: 2012Q4

REPORT INFORMATION
  Report Type: 
  Country: CA (occurrence: CA)
  Receive Date: 20121105
  Receipt Date: 20121105
  Transmission Date: 20130627
  Serious: Yes (Death)
  Sender: FDA-Public Use
  Company Number: CA-PFIZER INC-2012265493

PATIENT
  Age: 57 Year
  Sex: Male

DRUGS (9)
  1. CELEBREX [Suspect]
     Dosage: 200 mg, 1x/day
     Route: 048
     Dates: start: 20020318, end: 20021008
  2. PREDNISONE [Concomitant]
     Dosage: 15 mg, 1x/day
     Route: 048
  3. BABY ENTERIC COATED ASPIRIN [Concomitant]
     Dosage: 12.5 mg, UNK
  4. PEPCID [Concomitant]
     Dosage: UNK
  5. TYLENOL [Concomitant]
     Dosage: UNK
  6. MULTIVITE [Concomitant]
     Dosage: UNK
  7. VITAMIN E [Concomitant]
     Dosage: UNK
  8. CALCIUM [Concomitant]
     Dosage: UNK
  9. SENOKOT [Concomitant]
     Dosage: UNK

REACTIONS (1)
  - Renal failure acute [Fatal]
